FAERS Safety Report 8281318-1 (Version None)
Quarter: 2012Q2

REPORT INFORMATION
  Report Type: 
  Country: None (occurrence: None)
  Receive Date: 20120413
  Receipt Date: 20120406
  Transmission Date: 20120825
  Serious: No
  Sender: FDA-Public Use
  Company Number: US-PFIZER INC-2012088013

PATIENT

DRUGS (4)
  1. SULFUR [Suspect]
     Dosage: UNK
  2. OXYCODONE HCL [Suspect]
     Dosage: UNK
  3. MORPHINE SULFATE [Suspect]
     Dosage: UNK
  4. LEXAPRO [Suspect]
     Dosage: UNK

REACTIONS (1)
  - DRUG HYPERSENSITIVITY [None]
